FAERS Safety Report 14987379 (Version 1)
Quarter: 2018Q2

REPORT INFORMATION
  Report Type: Spontaneous
  Country: US (occurrence: US)
  Receive Date: 20180518
  Receipt Date: 20180518
  Transmission Date: 20180711
  Serious: Yes (Other)
  Sender: FDA-Public Use
  Company Number: None

PATIENT
  Age: 69 Year
  Sex: Male
  Weight: 78.3 kg

DRUGS (13)
  1. METOPROLOL. [Concomitant]
     Active Substance: METOPROLOL
  2. PREDNISONE. [Concomitant]
     Active Substance: PREDNISONE
  3. SYNTHROID [Concomitant]
     Active Substance: LEVOTHYROXINE SODIUM
  4. ADVAIR DISKUS [Concomitant]
     Active Substance: FLUTICASONE PROPIONATE\SALMETEROL XINAFOATE
  5. SINGULAIR [Concomitant]
     Active Substance: MONTELUKAST SODIUM
  6. LISINOPRIL. [Concomitant]
     Active Substance: LISINOPRIL
  7. ZETIA [Concomitant]
     Active Substance: EZETIMIBE
  8. ASPIRIN. [Concomitant]
     Active Substance: ASPIRIN
  9. CALTRATE [Concomitant]
     Active Substance: CALCIUM CARBONATE
  10. ZYRTEC [Concomitant]
     Active Substance: CETIRIZINE HYDROCHLORIDE
  11. ZYTIGA [Suspect]
     Active Substance: ABIRATERONE ACETATE
     Indication: PROSTATE CANCER
     Route: 048
     Dates: start: 20170616
  12. DOCUSATE [Concomitant]
     Active Substance: DOCUSATE
  13. CASODEX [Concomitant]
     Active Substance: BICALUTAMIDE

REACTIONS (1)
  - Contusion [None]
